FAERS Safety Report 24943036 (Version 1)
Quarter: 2025Q1

REPORT INFORMATION
  Report Type: Spontaneous
  Country: US (occurrence: US)
  Receive Date: 20250207
  Receipt Date: 20250207
  Transmission Date: 20250408
  Serious: Yes (Other)
  Sender: COOPERSURGICAL
  Company Number: US-COOPERSURGICAL, INC.-2025CPS000597

PATIENT
  Age: 26 Year
  Sex: Female
  Weight: 108.84 kg

DRUGS (1)
  1. PARAGARD T 380A [Suspect]
     Active Substance: COPPER
     Route: 015
     Dates: start: 20120901

REACTIONS (9)
  - Abortion spontaneous [Recovered/Resolved]
  - Hysterectomy [Recovered/Resolved]
  - Cervical dysplasia [Recovered/Resolved]
  - Device breakage [Not Recovered/Not Resolved]
  - Foreign body in reproductive tract [Not Recovered/Not Resolved]
  - Complication of device removal [Not Recovered/Not Resolved]
  - Embedded device [Not Recovered/Not Resolved]
  - Device issue [Recovered/Resolved]
  - Emotional disorder [Unknown]

NARRATIVE: CASE EVENT DATE: 20200117
